FAERS Safety Report 5964583-2 (Version None)
Quarter: 2008Q4

REPORT INFORMATION
  Report Type: 
  Country: None (occurrence: None)
  Receive Date: 20081119
  Receipt Date: 20081106
  Transmission Date: 20090506
  Serious: Yes (Other)
  Sender: FDA-Public Use
  Company Number: JPI-P-005374

PATIENT
  Age: 78 Year
  Sex: Male

DRUGS (2)
  1. LUVOX [Suspect]
     Indication: DEPRESSION
     Dosage: (25 MG,1 D), ORAL
     Route: 048
     Dates: start: 20031201, end: 20081023
  2. STOMIN A [Concomitant]

REACTIONS (1)
  - PLATELET COUNT DECREASED [None]
